FAERS Safety Report 9710926 (Version 2)
Quarter: 2013Q4

REPORT INFORMATION
  Report Type: Spontaneous
  Country: US (occurrence: US)
  Receive Date: 20131126
  Receipt Date: 20131126
  Transmission Date: 20140711
  Serious: No
  Sender: FDA-Public Use
  Company Number: US-BRISTOL-MYERS SQUIBB COMPANY-19043587

PATIENT
  Age: 65 Year
  Sex: Male
  Weight: 83.9 kg

DRUGS (4)
  1. BYDUREON [Suspect]
     Indication: TYPE 2 DIABETES MELLITUS
     Dates: start: 201302
  2. BYETTA [Suspect]
     Dosage: LAST DOSE ON MAY13
  3. ATORVASTATIN [Concomitant]
  4. PRILOSEC [Concomitant]

REACTIONS (3)
  - Dry mouth [Recovering/Resolving]
  - Drug ineffective [Unknown]
  - Injection site nodule [Not Recovered/Not Resolved]
